FAERS Safety Report 9515325 (Version 1)
Quarter: 2013Q1

REPORT INFORMATION
  Report Type: Spontaneous
  Country: US (occurrence: None)
  Receive Date: 20130305
  Receipt Date: 20130305
  Transmission Date: 20140127
  Serious: Yes (Other)
  Sender: FDA-Public Use
  Company Number: 163-21880-12121504

PATIENT
  Age: 55 Year
  Sex: Female

DRUGS (7)
  1. REVLIMID (LENALIDOMIDE) (10 MILLIGRAMS, CAPSULES) [Suspect]
     Indication: PLASMA CELL MYELOMA
     Dosage: 10 MG, AT BEDTIME, PO
     Route: 048
     Dates: start: 20120920
  2. OXYCODONE (OXYCODONE) (UNKNOWN) (OXYCODONE) [Concomitant]
  3. LIPITOR (ATORVASTATIN) (UNKNOWN) [Concomitant]
  4. BACTRIM (BACTRIM) (UNKNOWN) [Concomitant]
  5. ACYCLOVIR (ACICLOVIR) (UNKNOWN) [Concomitant]
  6. GABAPENTIN (GABAPENTIN) (UNKNOWN) (GABAPENTIN) [Concomitant]
  7. PROTONIX (UNKNOWN) [Concomitant]

REACTIONS (2)
  - Upper respiratory tract infection [None]
  - Gastroenteritis viral [None]
